FAERS Safety Report 5745567-6 (Version None)
Quarter: 2008Q2

REPORT INFORMATION
  Report Type: 
  Country: None (occurrence: None)
  Receive Date: 20080521
  Receipt Date: 20080514
  Transmission Date: 20081010
  Serious: Yes (Other)
  Sender: FDA-Public Use
  Company Number: IE-PFIZER INC-2008022858

PATIENT
  Age: 32 Year
  Sex: Male

DRUGS (1)
  1. CHANTIX [Suspect]
     Indication: SMOKING CESSATION THERAPY
     Route: 048

REACTIONS (4)
  - ABNORMAL DREAMS [None]
  - LOWER RESPIRATORY TRACT INFECTION [None]
  - PYREXIA [None]
  - THINKING ABNORMAL [None]
